FAERS Safety Report 12696637 (Version 2)
Quarter: 2016Q3

REPORT INFORMATION
  Report Type: Spontaneous
  Country: FR (occurrence: FR)
  Receive Date: 20160830
  Receipt Date: 20160916
  Transmission Date: 20161109
  Serious: Yes (Other)
  Sender: FDA-Public Use
  Company Number: FR-BAUSCH-BL-2016-020137

PATIENT
  Age: 75 Year
  Sex: Female

DRUGS (4)
  1. DEXAFREE [Concomitant]
     Active Substance: DEXAMETHASONE SODIUM PHOSPHATE
     Indication: POSTOPERATIVE CARE
     Route: 047
  2. QUINOFREE [Concomitant]
     Indication: POSTOPERATIVE CARE
     Route: 047
  3. YELLOX 0.9 MG/ML EYE DROPS, SOLUTION [Suspect]
     Active Substance: BROMFENAC SODIUM
     Indication: POSTOPERATIVE CARE
     Route: 047
     Dates: start: 201606, end: 2016
  4. NEO-SYNEPHRINE [Concomitant]
     Active Substance: PHENYLEPHRINE HYDROCHLORIDE
     Indication: POSTOPERATIVE CARE
     Route: 047

REACTIONS (6)
  - Vision blurred [Not Recovered/Not Resolved]
  - Off label use [Recovered/Resolved]
  - Syncope [Unknown]
  - Papilloedema [Recovering/Resolving]
  - Tachycardia [Unknown]
  - Visual acuity reduced [Unknown]

NARRATIVE: CASE EVENT DATE: 2016
